FAERS Safety Report 12929040 (Version 1)
Quarter: 2016Q4

REPORT INFORMATION
  Report Type: Spontaneous
  Country: US (occurrence: US)
  Receive Date: 20161110
  Receipt Date: 20161110
  Transmission Date: 20170207
  Serious: No
  Sender: FDA-Public Use
  Company Number: US-TEVA-702691ACC

PATIENT
  Age: 20 Year
  Sex: Female
  Weight: 76.73 kg

DRUGS (3)
  1. PARAGARD T 380A [Suspect]
     Active Substance: COPPER
     Indication: CONTRACEPTION
     Dates: start: 20160713, end: 20160718
  2. AZELEX 20% [Concomitant]
     Indication: ACNE
     Route: 061
  3. FLONASE [Concomitant]
     Active Substance: FLUTICASONE PROPIONATE

REACTIONS (3)
  - Uterine pain [Unknown]
  - Muscle spasms [Unknown]
  - Syncope [Unknown]

NARRATIVE: CASE EVENT DATE: 20160713
